FAERS Safety Report 12683069 (Version 1)
Quarter: 2016Q3

REPORT INFORMATION
  Report Type: Spontaneous
  Country: US (occurrence: None)
  Receive Date: 20160824
  Receipt Date: 20160824
  Transmission Date: 20161109
  Serious: No
  Sender: FDA-Public Use
  Company Number: None

PATIENT
  Sex: Male

DRUGS (1)
  1. MORPHINE SULFATE EXTENDED RELEASE [Suspect]
     Active Substance: MORPHINE SULFATE

REACTIONS (8)
  - Malaise [None]
  - Vomiting [None]
  - Incorrect dose administered [None]
  - Gait disturbance [None]
  - Tremor [None]
  - Hyperhidrosis [None]
  - Disorientation [None]
  - Drug dispensing error [None]

NARRATIVE: CASE EVENT DATE: 2016
